FAERS Safety Report 5873265-7 (Version None)
Quarter: 2008Q3

REPORT INFORMATION
  Report Type: 
  Country: None (occurrence: None)
  Receive Date: 20080908
  Receipt Date: 20080829
  Transmission Date: 20090109
  Serious: Yes (Hospitalization)
  Sender: FDA-Public Use
  Company Number: FR-JNJFOC-20080900350

PATIENT
  Age: 51 Year
  Sex: Male

DRUGS (4)
  1. REMICADE [Suspect]
     Indication: RHEUMATOID ARTHRITIS
     Route: 042
  2. PROZAC [Concomitant]
  3. METHOTREXATE [Concomitant]
  4. CORTANCYL [Concomitant]

REACTIONS (2)
  - HALLUCINATION, VISUAL [None]
  - HYPERHIDROSIS [None]
